FAERS Safety Report 5562839-9 (Version None)
Quarter: 2007Q4

REPORT INFORMATION
  Report Type: 
  Country: None (occurrence: None)
  Receive Date: 20071212
  Receipt Date: 20071212
  Transmission Date: 20080405
  Serious: No
  Sender: FDA-Public Use
  Company Number: None

PATIENT

DRUGS (1)
  1. FLOXIN [Suspect]

REACTIONS (10)
  - BONE DENSITY DECREASED [None]
  - DRUG INEFFECTIVE [None]
  - JOINT SWELLING [None]
  - MORTON'S NEUROMA [None]
  - MUSCULOSKELETAL PAIN [None]
  - OEDEMA PERIPHERAL [None]
  - PAIN [None]
  - PARAESTHESIA [None]
  - TENDON RUPTURE [None]
  - THINKING ABNORMAL [None]
